FAERS Safety Report 9297396 (Version 1)
Quarter: 2013Q2

REPORT INFORMATION
  Report Type: Spontaneous
  Country: US (occurrence: US)
  Receive Date: 20130520
  Receipt Date: 20130520
  Transmission Date: 20140414
  Serious: No
  Sender: FDA-Public Use
  Company Number: US-BIOGENIDEC-2013BI044634

PATIENT
  Sex: Female

DRUGS (2)
  1. TYSABRI [Suspect]
     Indication: MULTIPLE SCLEROSIS
     Route: 042
     Dates: start: 20121220, end: 20130117
  2. AVONEX [Concomitant]
     Indication: MULTIPLE SCLEROSIS
     Route: 030
     Dates: start: 20110422

REACTIONS (5)
  - Abasia [Recovered/Resolved]
  - Decreased immune responsiveness [Unknown]
  - Feeling abnormal [Recovered/Resolved]
  - Candida infection [Recovered/Resolved]
  - Nasopharyngitis [Recovered/Resolved]
